FAERS Safety Report 18377382 (Version 2)
Quarter: 2020Q4

REPORT INFORMATION
  Report Type: Spontaneous
  Country: FR (occurrence: FR)
  Receive Date: 20201013
  Receipt Date: 20201029
  Transmission Date: 20210114
  Serious: Yes (Other)
  Sender: FDA-Public Use
  Company Number: FR-GLAXOSMITHKLINE-FR2020200427

PATIENT
  Age: 36 Year
  Sex: Male
  Weight: 55 kg

DRUGS (12)
  1. INEXIUM [Suspect]
     Active Substance: ESOMEPRAZOLE
     Indication: CYSTIC FIBROSIS GASTROINTESTINAL DISEASE
     Dosage: UNK
     Route: 048
  2. A 313 [Suspect]
     Active Substance: RETINOL
     Indication: CYSTIC FIBROSIS
     Dosage: 4 DF, WE
     Route: 065
  3. ORKAMBI [Suspect]
     Active Substance: IVACAFTOR\LUMACAFTOR
     Indication: CYSTIC FIBROSIS
     Dosage: 800 MG, QD(200 / 125MG: 2 TABS MORNING AND EVENING)
     Route: 048
     Dates: start: 201602
  4. INEXIUM [Suspect]
     Active Substance: ESOMEPRAZOLE
     Indication: CYSTIC FIBROSIS GASTROINTESTINAL DISEASE
     Dosage: 2 UNK
     Route: 048
  5. KESTINLYO [Suspect]
     Active Substance: EBASTINE
     Indication: PRODUCT USED FOR UNKNOWN INDICATION
     Dosage: 20 MG, QD
     Route: 065
  6. BETA CAROTENE. [Suspect]
     Active Substance: BETA CAROTENE
     Indication: CYSTIC FIBROSIS
     Dosage: 4 MG, QD
     Route: 048
  7. VENTOLINE [Suspect]
     Active Substance: ALBUTEROL
     Indication: CYSTIC FIBROSIS LUNG
     Dosage: 2.5 MG, QD(1 SCOOP PER DAY IN AEROSOL)
     Route: 055
  8. UVEDOSE [Suspect]
     Active Substance: CHOLECALCIFEROL
     Indication: CYSTIC FIBROSIS
     Dosage: 100000 IU, UNK(1 AMPOULE/3 MOIS)
     Route: 048
  9. TOCO [Suspect]
     Active Substance: .ALPHA.-TOCOPHEROL ACETATE, D-
     Indication: CYSTIC FIBROSIS
     Dosage: 3 DF, QD(3 CAPSULES PER DAY DURING MEALS)
     Route: 048
  10. FORADIL [Suspect]
     Active Substance: FORMOTEROL FUMARATE
     Indication: CYSTIC FIBROSIS LUNG
     Dosage: 4 DF, QD(2 CAPSULES IN INHALATION MORNING AND EVENING)
     Route: 055
  11. AIROMIR [Suspect]
     Active Substance: ALBUTEROL SULFATE
     Indication: CYSTIC FIBROSIS LUNG
     Dosage: 200 ?G, PRN (2 INHALATION BEFORE AEROSOLS IF SPORT)
     Route: 055
  12. SODIUM CHLORIDE. [Suspect]
     Active Substance: SODIUM CHLORIDE
     Indication: CYSTIC FIBROSIS
     Dosage: 500 MG (3 TO 6 CAPSULES PER DAY)
     Route: 048

REACTIONS (1)
  - Oesophageal adenocarcinoma [Not Recovered/Not Resolved]

NARRATIVE: CASE EVENT DATE: 202009
